FAERS Safety Report 21735880 (Version 6)
Quarter: 2025Q3

REPORT INFORMATION
  Report Type: Report from Study
  Country: CA (occurrence: CA)
  Receive Date: 20221215
  Receipt Date: 20250825
  Transmission Date: 20251021
  Serious: Yes (Hospitalization)
  Sender: PFIZER
  Company Number: CA-PFIZER INC-202201258112

PATIENT
  Age: 77 Year
  Sex: Male

DRUGS (22)
  1. RITUXIMAB [Suspect]
     Active Substance: RITUXIMAB
     Indication: Vasculitis
     Route: 041
  2. RITUXIMAB [Suspect]
     Active Substance: RITUXIMAB
     Indication: Granulomatosis with polyangiitis
     Route: 041
  3. RITUXIMAB [Suspect]
     Active Substance: RITUXIMAB
     Route: 042
  4. RITUXIMAB [Suspect]
     Active Substance: RITUXIMAB
     Route: 042
  5. RITUXIMAB [Suspect]
     Active Substance: RITUXIMAB
     Route: 042
  6. RITUXIMAB [Suspect]
     Active Substance: RITUXIMAB
     Indication: Granulomatosis with polyangiitis
     Route: 041
  7. RITUXIMAB [Suspect]
     Active Substance: RITUXIMAB
     Route: 041
  8. RITUXIMAB [Suspect]
     Active Substance: RITUXIMAB
     Route: 042
  9. ASPIRIN [Concomitant]
     Active Substance: ASPIRIN
  10. GARLIC [Concomitant]
     Active Substance: GARLIC
  11. ALLOPURINOL [Concomitant]
     Active Substance: ALLOPURINOL
  12. ALLOPURINOL [Concomitant]
     Active Substance: ALLOPURINOL
  13. BRILINTA [Concomitant]
     Active Substance: TICAGRELOR
  14. METOPROLOL [Concomitant]
     Active Substance: METOPROLOL
  15. PANTOPRAZOLE [Concomitant]
     Active Substance: PANTOPRAZOLE
  16. RAMIPRIL [Concomitant]
     Active Substance: RAMIPRIL
  17. ROSUVASTATIN [Concomitant]
     Active Substance: ROSUVASTATIN
     Route: 058
  18. ROSUVASTATIN [Concomitant]
     Active Substance: ROSUVASTATIN
  19. BENADRYL [Concomitant]
     Active Substance: DIPHENHYDRAMINE HYDROCHLORIDE
     Route: 048
  20. METHYLPREDNISOLONE SODIUM SUCCINATE [Concomitant]
     Active Substance: METHYLPREDNISOLONE SODIUM SUCCINATE
     Route: 048
  21. TYLENOL [Concomitant]
     Active Substance: ACETAMINOPHEN
     Indication: Premedication
     Route: 048
  22. ROSUVASTATIN CALCIUM [Concomitant]
     Active Substance: ROSUVASTATIN CALCIUM

REACTIONS (14)
  - Myocardial infarction [Unknown]
  - Arthralgia [Unknown]
  - Back pain [Unknown]
  - Blood pressure diastolic decreased [Unknown]
  - Heart rate decreased [Unknown]
  - Hypertension [Unknown]
  - Granulomatosis with polyangiitis [Unknown]
  - Hypoacusis [Unknown]
  - Speech disorder [Unknown]
  - C-reactive protein increased [Unknown]
  - Skin discolouration [Unknown]
  - Infusion site extravasation [Unknown]
  - Vascular access site oedema [Unknown]
  - Blood pressure systolic abnormal [Unknown]
